FAERS Safety Report 10077832 (Version 3)
Quarter: 2014Q2

REPORT INFORMATION
  Report Type: Spontaneous
  Country: FI (occurrence: FI)
  Receive Date: 20140414
  Receipt Date: 20140421
  Transmission Date: 20141212
  Serious: Yes (Hospitalization, Other)
  Sender: FDA-Public Use
  Company Number: FI-ELI_LILLY_AND_COMPANY-FI201403000987

PATIENT
  Age: 49 Year
  Sex: Male

DRUGS (10)
  1. ZYPADHERA [Suspect]
     Indication: SCHIZOAFFECTIVE DISORDER
     Dosage: 300 MG, 2/M: EVERY TWO WEEKS
     Route: 030
     Dates: start: 201205, end: 20140227
  2. DEPRAKINE                          /00228501/ [Concomitant]
     Indication: SCHIZOAFFECTIVE DISORDER
     Dosage: 1800 MG, UNK
     Route: 048
     Dates: start: 20130104
  3. THYROXIN [Concomitant]
     Indication: HYPOTHYROIDISM
     Dosage: 50 UG, QD
     Route: 048
     Dates: start: 20101004
  4. SIMVASTATIN [Concomitant]
     Indication: HYPERCHOLESTEROLAEMIA
     Dosage: 40 MG, QD
     Route: 048
     Dates: start: 20090717
  5. MELATONIN [Concomitant]
     Indication: INSOMNIA
     Dosage: 3 MG, BID
     Route: 048
     Dates: start: 20090405
  6. MINISUN [Concomitant]
     Indication: NUTRITIONAL SUPPLEMENTATION
     Dosage: 0.20 MG, UNKNOWN
     Route: 048
     Dates: start: 20121217
  7. METFORMIN [Concomitant]
     Indication: TYPE 2 DIABETES MELLITUS
     Dosage: 2250 MG, QD
     Route: 065
     Dates: start: 20131010
  8. RIVATRIL [Concomitant]
     Indication: INSOMNIA
     Dosage: 0.5 MG, MAX 2MG PER DAY WHEN NEEDED
     Route: 048
     Dates: start: 20130225
  9. OMEGA-3 [Concomitant]
     Indication: NUTRITIONAL SUPPLEMENTATION
     Dosage: 1 DF, QD
     Route: 048
     Dates: start: 20121217
  10. ENALAPRIL KRKA [Concomitant]
     Indication: HYPERTENSION
     Dosage: 5 MG, QD
     Route: 065
     Dates: start: 20131204

REACTIONS (11)
  - Sedation [Recovering/Resolving]
  - Hypotension [Recovered/Resolved]
  - Heart rate increased [Recovered/Resolved]
  - Dizziness [Unknown]
  - Dysarthria [Recovering/Resolving]
  - Blood pressure increased [Recovering/Resolving]
  - Somnolence [Recovered/Resolved]
  - Depressed level of consciousness [Recovered/Resolved]
  - Chest pain [Unknown]
  - Blood creatinine increased [Unknown]
  - Pallor [Unknown]
